FAERS Safety Report 17955505 (Version 1)
Quarter: 2020Q2

REPORT INFORMATION
  Report Type: Spontaneous
  Country: US (occurrence: US)
  Receive Date: 20200626
  Receipt Date: 20200626
  Transmission Date: 20200714
  Serious: Yes (Disabling)
  Sender: FDA-Public Use
  Company Number: None

PATIENT
  Age: 43 Year
  Sex: Male
  Weight: 90 kg

DRUGS (5)
  1. LEVOFLOXACIN 750 MG GENERIC FOR LEVAQUIN [Suspect]
     Active Substance: LEVOFLOXACIN
     Indication: URINARY TRACT INFECTION
     Dosage: ?          QUANTITY:10 TABLET(S);?
     Route: 048
     Dates: start: 20200610, end: 20200612
  2. SIMVASTATIN. [Concomitant]
     Active Substance: SIMVASTATIN
  3. MELOXICAM. [Concomitant]
     Active Substance: MELOXICAM
  4. TYLENOL [Concomitant]
     Active Substance: ACETAMINOPHEN
  5. LEVOFLOXACIN 750 MG GENERIC FOR LEVAQUIN [Suspect]
     Active Substance: LEVOFLOXACIN
     Indication: PROSTATITIS
     Dosage: ?          QUANTITY:10 TABLET(S);?
     Route: 048
     Dates: start: 20200610, end: 20200612

REACTIONS (8)
  - Heart rate increased [None]
  - Head discomfort [None]
  - Chest pain [None]
  - Paraesthesia [None]
  - Pain in extremity [None]
  - Dyspnoea [None]
  - Headache [None]
  - Nervousness [None]

NARRATIVE: CASE EVENT DATE: 20200612
